FAERS Safety Report 15173232 (Version 4)
Quarter: 2018Q4

REPORT INFORMATION
  Report Type: Spontaneous
  Country: CN (occurrence: CN)
  Receive Date: 20180720
  Receipt Date: 20180904
  Transmission Date: 20190204
  Serious: Yes (Death, Life-Threatening, Hospitalization)
  Sender: FDA-Public Use
  Company Number: CN-ASTRAZENECA-2018SE89795

PATIENT
  Age: 51 Year
  Sex: Male

DRUGS (1)
  1. AZD-9291 [Suspect]
     Active Substance: OSIMERTINIB
     Indication: EGFR GENE MUTATION
     Route: 048
     Dates: start: 201708

REACTIONS (7)
  - Toxic epidermal necrolysis [Recovered/Resolved]
  - Product packaging issue [Unknown]
  - Acinetobacter infection [Recovered/Resolved]
  - Suspected counterfeit product [Unknown]
  - Staphylococcal skin infection [Recovered/Resolved]
  - Fungal infection [Unknown]
  - Oral mucosal blistering [Recovered/Resolved]

NARRATIVE: CASE EVENT DATE: 201709
